FAERS Safety Report 17443372 (Version 1)
Quarter: 2020Q1

REPORT INFORMATION
  Report Type: Spontaneous
  Country: US (occurrence: US)
  Receive Date: 20200221
  Receipt Date: 20200221
  Transmission Date: 20200409
  Serious: No
  Sender: FDA-Public Use
  Company Number: US-DRREDDYS-USA/USA/20/0119712

PATIENT
  Sex: Male
  Weight: 79.65 kg

DRUGS (1)
  1. ZENATANE [Suspect]
     Active Substance: ISOTRETINOIN
     Indication: ACNE
     Route: 048
     Dates: start: 20200109

REACTIONS (2)
  - Pharyngeal oedema [Recovering/Resolving]
  - Throat irritation [Recovering/Resolving]
